FAERS Safety Report 5589460-0 (Version None)
Quarter: 2008Q1

REPORT INFORMATION
  Report Type: 
  Country: None (occurrence: None)
  Receive Date: 20080110
  Receipt Date: 20080110
  Transmission Date: 20080703
  Serious: Yes (Hospitalization)
  Sender: FDA-Public Use
  Company Number: None

PATIENT
  Sex: Female
  Weight: 42.1845 kg

DRUGS (2)
  1. SINGULAIR [Suspect]
     Indication: SEASONAL ALLERGY
     Dosage: 10 MG DAILY PO
     Route: 048
     Dates: start: 20070427, end: 20070828
  2. ABILIFY [Suspect]
     Indication: AFFECTIVE DISORDER
     Dosage: 1/2 TAB (7.5MG) BID PO
     Route: 048
     Dates: start: 20070824, end: 20070828

REACTIONS (4)
  - BLEPHAROSPASM [None]
  - EXTRAPYRAMIDAL DISORDER [None]
  - EYE ROLLING [None]
  - MUSCULOSKELETAL STIFFNESS [None]
